FAERS Safety Report 5059930-2 (Version None)
Quarter: 2006Q3

REPORT INFORMATION
  Report Type: 
  Country: None (occurrence: None)
  Receive Date: 20060719
  Receipt Date: 20060707
  Transmission Date: 20061208
  Serious: Yes (Hospitalization)
  Sender: FDA-Public Use
  Company Number: E2090-00042-SPO-JP

PATIENT
  Age: 24 Year
  Sex: Female

DRUGS (3)
  1. ZONISAMIDE [Suspect]
     Indication: CEREBRAL PALSY
     Dosage: ORAL
     Route: 048
  2. ZONISAMIDE [Suspect]
     Indication: EPILEPSY
     Dosage: ORAL
     Route: 048
  3. DEPAKENE [Concomitant]

REACTIONS (3)
  - CALCULUS URETERIC [None]
  - HAEMATURIA [None]
  - NEPHROLITHIASIS [None]
